FAERS Safety Report 23862170 (Version 1)
Quarter: 2024Q2

REPORT INFORMATION
  Report Type: Spontaneous
  Country: DE (occurrence: DE)
  Receive Date: 20240516
  Receipt Date: 20240516
  Transmission Date: 20240715
  Serious: Yes (Hospitalization, Other)
  Sender: FDA-Public Use
  Company Number: DE-BFARM-24003095

PATIENT
  Age: 25 Year
  Sex: Male

DRUGS (2)
  1. RISPERIDONE [Suspect]
     Active Substance: RISPERIDONE
     Indication: Product used for unknown indication
     Dosage: 1 MILLIGRAM, ONCE A DAY
     Route: 048
     Dates: start: 20240216, end: 20240217
  2. RISPERIDONE [Suspect]
     Active Substance: RISPERIDONE
     Dosage: 3 MILLIGRAM, ONCE A DAY
     Route: 048
     Dates: start: 20240218, end: 20240218

REACTIONS (5)
  - Chills [Recovered/Resolved]
  - Dyskinesia [Recovered/Resolved]
  - Dyspnoea [Recovered/Resolved]
  - Speech disorder [Recovered/Resolved]
  - Psychotic symptom [Recovered/Resolved]

NARRATIVE: CASE EVENT DATE: 20240218
